FAERS Safety Report 23863354 (Version 2)
Quarter: 2024Q2

REPORT INFORMATION
  Report Type: Report from Study
  Country: EG (occurrence: EG)
  Receive Date: 20240516
  Receipt Date: 20240530
  Transmission Date: 20240715
  Serious: Yes (Other)
  Sender: FDA-Public Use
  Company Number: EG-002147023-NVSC2024EG092910

PATIENT
  Age: 72 Year
  Sex: Male

DRUGS (10)
  1. ENTRESTO [Suspect]
     Active Substance: SACUBITRIL\VALSARTAN
     Indication: Heart failure with midrange ejection fraction
     Dosage: 50 MG, BID
     Route: 048
     Dates: start: 20240408
  2. CORDARONE [Concomitant]
     Active Substance: AMIODARONE HYDROCHLORIDE
     Indication: Cardiac disorder
     Dosage: 0.5 DOSAGE FORM, BID, 6 YEARS AGO
     Route: 048
  3. CIDOPHAGE [Concomitant]
     Indication: Diabetes mellitus
     Dosage: 1 DOSAGE FORM, QD, START DATE-4 YEARS AGO, END DATE- 2-3 MONTHS AGO
     Route: 065
  4. LIPITIN [Concomitant]
     Indication: Blood cholesterol abnormal
     Dosage: 1 DOSAGE FORM, QD, START DATE-6 YEARS AGO, END DATE- 3 MONTHS AGO
     Route: 048
  5. MINALAX [Concomitant]
     Indication: Product used for unknown indication
     Dosage: 1 DOSAGE FORM, QD, START DATE- 6 YEARS AGO, END DATE- 2 MONTHS AGO
     Route: 048
  6. JUSPRIN [Concomitant]
     Indication: Haemophilia
     Dosage: 81 MG, 1 DOSAGE FORM, QD, START DATE- 6 YEARS AGO, END DATE -2-3 MONTHS AGO
     Route: 048
  7. JUSPRIN [Concomitant]
     Dosage: 100 MG, 1 DOSAGE FORM, QD, 2-3 MONTHS AGO
     Route: 048
  8. TAMSULOSIN HYDROCHLORIDE [Concomitant]
     Active Substance: TAMSULOSIN HYDROCHLORIDE
     Indication: Prostatic disorder
     Dosage: 1 DOSAGE FORM, QD
     Route: 048
     Dates: start: 20240311
  9. PANTOPRAZOLE SODIUM [Concomitant]
     Active Substance: PANTOPRAZOLE SODIUM
     Indication: Abdominal discomfort
     Dosage: 1 DOSAGE FORM, QD, 3 MONTHS AGO
     Route: 048
  10. ROSUVASTATIN [Concomitant]
     Active Substance: ROSUVASTATIN
     Indication: Blood cholesterol abnormal
     Dosage: 1 DOSAGE FORM, QD, 3 MONTHS AGO
     Route: 048

REACTIONS (2)
  - Loss of consciousness [Recovered/Resolved]
  - Blood pressure abnormal [Unknown]

NARRATIVE: CASE EVENT DATE: 20240411
